FAERS Safety Report 6031975-5 (Version None)
Quarter: 2009Q1

REPORT INFORMATION
  Report Type: 
  Country: None (occurrence: None)
  Receive Date: 20090107
  Receipt Date: 20081222
  Transmission Date: 20090719
  Serious: Yes (Hospitalization, Other)
  Sender: FDA-Public Use
  Company Number: 001#0#2008-00646

PATIENT
  Sex: Female
  Weight: 48 kg

DRUGS (3)
  1. ISOKET RETARD (ISOKET-RETARD-120) [Suspect]
     Dosage: (120 MG, 8400 MG MAXIMUM ONCE ORAL)
     Route: 048
     Dates: start: 20081101, end: 20081101
  2. L-THYROXINE /00068001/ (L-THYROXINE) [Suspect]
     Dosage: (50 UG, 5 MG MAXIMUM ONCE ORAL)
     Route: 048
     Dates: start: 20081101, end: 20081101
  3. TOREM /01036501/ (TOREM) (NOT SPECIFIED) [Suspect]
     Dosage: (10 MG, 100 MG MAXIMUM ONCE ORAL)
     Route: 048
     Dates: start: 20081101, end: 20081101

REACTIONS (8)
  - DISORIENTATION [None]
  - HYPOTENSION [None]
  - INCORRECT DOSE ADMINISTERED [None]
  - INTENTIONAL SELF-INJURY [None]
  - POLYURIA [None]
  - SOMNOLENCE [None]
  - SUICIDAL IDEATION [None]
  - TACHYCARDIA [None]
